FAERS Safety Report 24698689 (Version 3)
Quarter: 2025Q1

REPORT INFORMATION
  Report Type: Report from Study
  Country: US (occurrence: US)
  Receive Date: 20241204
  Receipt Date: 20250217
  Transmission Date: 20250409
  Serious: Yes (Hospitalization, Other)
  Sender: ABBVIE
  Company Number: US-ABBVIE-5947741

PATIENT
  Age: 86 Year
  Sex: Male
  Weight: 79 kg

DRUGS (21)
  1. IMBRUVICA [Suspect]
     Active Substance: IBRUTINIB
     Indication: Chronic lymphocytic leukaemia
     Dosage: FORM STRENGTH: 420 MG
     Route: 048
     Dates: start: 20170124
  2. IMBRUVICA [Suspect]
     Active Substance: IBRUTINIB
     Indication: Chronic lymphocytic leukaemia
     Dosage: FORM STRENGTH: 420MG
     Route: 048
     Dates: start: 202205
  3. FINASTERIDE [Concomitant]
     Active Substance: FINASTERIDE
     Indication: Prostatomegaly
  4. CLONIDINE HYDROCHLORIDE [Concomitant]
     Active Substance: CLONIDINE HYDROCHLORIDE
     Indication: Hypertension
  5. ASPIRIN [Concomitant]
     Active Substance: ASPIRIN
     Indication: Routine health maintenance
  6. ASPIRIN [Concomitant]
     Active Substance: ASPIRIN
     Indication: Routine health maintenance
  7. ALLOPURINOL [Concomitant]
     Active Substance: ALLOPURINOL
     Indication: Product used for unknown indication
  8. AMLODIPINE [Concomitant]
     Active Substance: AMLODIPINE BESYLATE
     Indication: Hypertension
  9. AMLODIPINE [Concomitant]
     Active Substance: AMLODIPINE BESYLATE
     Indication: Hypertension
  10. PRAVASTATIN [Concomitant]
     Active Substance: PRAVASTATIN
     Indication: Cardiac disorder
  11. PRAVASTATIN [Concomitant]
     Active Substance: PRAVASTATIN
     Indication: Cardiac disorder
  12. TAMSULOSIN [Concomitant]
     Active Substance: TAMSULOSIN
     Indication: Prostatomegaly
  13. SYNTHROID [Concomitant]
     Active Substance: LEVOTHYROXINE SODIUM
     Indication: Thyroid disorder
  14. SYNTHROID [Concomitant]
     Active Substance: LEVOTHYROXINE SODIUM
     Indication: Thyroid disorder
  15. CARVEDILOL [Concomitant]
     Active Substance: CARVEDILOL
     Indication: Hypertension
  16. CARVEDILOL [Concomitant]
     Active Substance: CARVEDILOL
     Indication: Hypertension
  17. METFORMIN [Concomitant]
     Active Substance: METFORMIN HYDROCHLORIDE
     Indication: Diabetes mellitus
  18. METFORMIN [Concomitant]
     Active Substance: METFORMIN HYDROCHLORIDE
     Indication: Diabetes mellitus
  19. VITAMIN D3 [Concomitant]
     Active Substance: CHOLECALCIFEROL
     Indication: Vitamin supplementation
  20. VITAMIN D3 [Concomitant]
     Active Substance: CHOLECALCIFEROL
     Indication: Vitamin supplementation
  21. FENOFIBRATE [Concomitant]
     Active Substance: FENOFIBRATE
     Indication: Blood cholesterol

REACTIONS (8)
  - Muscular weakness [Recovered/Resolved]
  - Pneumonia [Recovering/Resolving]
  - Sepsis [Unknown]
  - Prostatomegaly [Not Recovered/Not Resolved]
  - Fall [Unknown]
  - Rash [Recovering/Resolving]
  - Rash macular [Recovering/Resolving]
  - Neoplasm malignant [Unknown]

NARRATIVE: CASE EVENT DATE: 20240610
